FAERS Safety Report 14781178 (Version 1)
Quarter: 2018Q2

REPORT INFORMATION
  Report Type: Spontaneous
  Country: TW (occurrence: TW)
  Receive Date: 20180419
  Receipt Date: 20180419
  Transmission Date: 20180711
  Serious: Yes (Death, Hospitalization, Other)
  Sender: FDA-Public Use
  Company Number: TW-ALEXION PHARMACEUTICALS INC-A201804560

PATIENT
  Age: 4 Year
  Sex: Female

DRUGS (2)
  1. SOLIRIS [Suspect]
     Active Substance: ECULIZUMAB
     Indication: OFF LABEL USE
     Dosage: UNK, Q2W
     Route: 065
  2. SOLIRIS [Suspect]
     Active Substance: ECULIZUMAB
     Indication: MALIGNANT ATROPHIC PAPULOSIS
     Dosage: 300 MG, UNK
     Route: 065

REACTIONS (8)
  - Subdural effusion [Fatal]
  - Haemorrhage intracranial [Fatal]
  - Seizure [Fatal]
  - Hydrocephalus [Fatal]
  - Off label use [Unknown]
  - Cerebral calcification [Fatal]
  - Intraventricular haemorrhage [Fatal]
  - Mydriasis [Fatal]
